FAERS Safety Report 6123134-2 (Version None)
Quarter: 2009Q1

REPORT INFORMATION
  Report Type: 
  Country: None (occurrence: None)
  Receive Date: 20090318
  Receipt Date: 20090310
  Transmission Date: 20090719
  Serious: Yes (Hospitalization, Other)
  Sender: FDA-Public Use
  Company Number: US-ELI_LILLY_AND_COMPANY-US200903002548

PATIENT
  Sex: Male

DRUGS (6)
  1. HUMULIN R [Suspect]
     Dosage: 14 U, UNK
  2. HUMULIN L [Suspect]
  3. ACCUPRIL [Concomitant]
  4. SIMVASTATIN [Concomitant]
  5. DUONEB [Concomitant]
  6. LANTUS [Concomitant]

REACTIONS (9)
  - BLINDNESS [None]
  - BLINDNESS UNILATERAL [None]
  - BLOOD GLUCOSE INCREASED [None]
  - CEREBROVASCULAR ACCIDENT [None]
  - DRUG INEFFECTIVE [None]
  - GLAUCOMA [None]
  - NEUROPATHY PERIPHERAL [None]
  - SENSORY LOSS [None]
  - VISUAL ACUITY REDUCED [None]
